FAERS Safety Report 7811481-5 (Version None)
Quarter: 2011Q4

REPORT INFORMATION
  Report Type: 
  Country: None (occurrence: None)
  Receive Date: 20111011
  Receipt Date: 20111004
  Transmission Date: 20120403
  Serious: Yes (Other)
  Sender: FDA-Public Use
  Company Number: A0946947A

PATIENT
  Age: 56 Year
  Sex: Female

DRUGS (2)
  1. SODIUM FLUID + POTASSIUM NITRATE (FORMULATION UNKNOWN) (SODIUM FLUROID [Suspect]
     Indication: SENSITIVITY OF TEETH
     Dosage: / DENTAL
     Dates: end: 20111004
  2. NAFLUOR+ISOPENT+KNITRATE [Concomitant]

REACTIONS (8)
  - ASTHMA [None]
  - OROPHARYNGEAL PAIN [None]
  - COUGH [None]
  - HYPERSENSITIVITY [None]
  - THROAT IRRITATION [None]
  - FEELING ABNORMAL [None]
  - OROPHARYNGEAL DISCOMFORT [None]
  - THIRST [None]
